FAERS Safety Report 10149550 (Version 1)
Quarter: 2014Q2

REPORT INFORMATION
  Report Type: Report from Study
  Country: BR (occurrence: BR)
  Receive Date: 20140502
  Receipt Date: 20140502
  Transmission Date: 20141212
  Serious: Yes (Other)
  Sender: FDA-Public Use
  Company Number: PHHY2014BR052753

PATIENT
  Sex: Female
  Weight: 73 kg

DRUGS (6)
  1. DIOVAN HCT [Suspect]
     Indication: HYPERTENSION
     Dosage: 160 MG, TWICE A DAY (IN THE MORNING AND AT NIGHT)
     Route: 048
     Dates: start: 2006
  2. DIOVAN HCT [Suspect]
     Dosage: 1 DF (320/12.5 MG), UNK
  3. RIVOTRIL [Suspect]
     Indication: BLOOD PRESSURE ABNORMAL
     Dosage: 2 MG, ONCE AT NIGHT
     Route: 048
  4. HYDROCHLOROTHIAZIDE [Suspect]
     Indication: HYPERTENSION
     Dosage: 25 MG, ONCE IN MORNING
     Route: 048
     Dates: end: 2006
  5. PROPRANOLOL [Suspect]
     Indication: HYPERTENSION
     Dosage: 40 MG, TWICE A DAY
     Route: 048
     Dates: end: 2006
  6. OCUVITE LUTEIN                     /02380501/ [Concomitant]
     Indication: OCULAR DISCOMFORT
     Dosage: UNK UKN, UNK
     Dates: start: 2006

REACTIONS (9)
  - Diabetes mellitus [Unknown]
  - Eye disorder [Unknown]
  - Skin ulcer [Unknown]
  - Scratch [Unknown]
  - Nausea [Unknown]
  - Oedema peripheral [Unknown]
  - Pain in extremity [Unknown]
  - Hypersensitivity [Unknown]
  - Anxiety [Unknown]
